FAERS Safety Report 4320032-1 (Version None)
Quarter: 2004Q1

REPORT INFORMATION
  Report Type: 
  Country: None (occurrence: None)
  Receive Date: 20040315
  Receipt Date: 20031222
  Transmission Date: 20041129
  Serious: No
  Sender: FDA-Public Use
  Company Number: 2003191396US

PATIENT

DRUGS (1)
  1. BEXTRA [Suspect]
     Indication: MYALGIA
     Dosage: 10 MG, QD, ORAL
     Route: 048

REACTIONS (1)
  - CEREBROVASCULAR DISORDER [None]
